FAERS Safety Report 9030797 (Version 3)
Quarter: 2013Q4

REPORT INFORMATION
  Report Type: Spontaneous
  Country: US (occurrence: US)
  Receive Date: 20130123
  Receipt Date: 20131122
  Transmission Date: 20140711
  Serious: Yes (Hospitalization, Other)
  Sender: FDA-Public Use
  Company Number: US-009507513-1301USA010118

PATIENT
  Sex: Female

DRUGS (3)
  1. FOSAMAX [Suspect]
     Indication: OSTEOPOROSIS
     Dosage: 70 MG, WEEKLY
     Route: 048
     Dates: start: 20050929
  2. ALENDRONATE SODIUM [Suspect]
     Indication: OSTEOPOROSIS
     Dosage: 70 MG, UNK
     Route: 048
     Dates: start: 20080227, end: 20120101
  3. ALENDRONATE SODIUM [Suspect]
     Dosage: 35 UNK, UNK

REACTIONS (28)
  - Femur fracture [Recovered/Resolved]
  - Intramedullary rod insertion [Unknown]
  - Myocardial infarction [Unknown]
  - Hypoacusis [Unknown]
  - Low turnover osteopathy [Unknown]
  - Adverse event [Unknown]
  - Hypertension [Unknown]
  - Blood cholesterol increased [Unknown]
  - Rheumatoid arthritis [Unknown]
  - Infection [Unknown]
  - Infection [Unknown]
  - Infection [Unknown]
  - Infection [Unknown]
  - Anxiety [Unknown]
  - Pain [Unknown]
  - Restless legs syndrome [Unknown]
  - Thrombosis [Unknown]
  - Varicose vein [Unknown]
  - Insomnia [Unknown]
  - Osteopenia [Unknown]
  - Bunion operation [Unknown]
  - Diverticulum [Unknown]
  - Limb injury [Unknown]
  - Postoperative heterotopic calcification [Unknown]
  - Gastrooesophageal reflux disease [Unknown]
  - Pain in extremity [Unknown]
  - Dysphagia [Unknown]
  - Drug ineffective [Unknown]
